FAERS Safety Report 8170223-7 (Version None)
Quarter: 2012Q1

REPORT INFORMATION
  Report Type: 
  Country: None (occurrence: None)
  Receive Date: 20120228
  Receipt Date: 20120217
  Transmission Date: 20120608
  Serious: Yes (Hospitalization, Other)
  Sender: FDA-Public Use
  Company Number: US-BAYER-2011-028884

PATIENT
  Age: 22 Year
  Sex: Female
  Weight: 76 kg

DRUGS (5)
  1. YAZ [Suspect]
     Indication: CONTRACEPTION
     Dosage: UNK
     Dates: start: 20070101, end: 20090901
  2. CLINDAMYCIN [Concomitant]
  3. COUGH SYRUP [Concomitant]
  4. AZITHROMYCIN [Concomitant]
     Dosage: UNK
  5. HYDROCODONE [Concomitant]
     Dosage: UNK

REACTIONS (7)
  - INJURY [None]
  - GALLBLADDER INJURY [None]
  - ANHEDONIA [None]
  - BILIARY DYSKINESIA [None]
  - PAIN [None]
  - CHOLECYSTITIS CHRONIC [None]
  - EMOTIONAL DISTRESS [None]
